FAERS Safety Report 6261964-7 (Version None)
Quarter: 2009Q3

REPORT INFORMATION
  Report Type: 
  Country: None (occurrence: None)
  Receive Date: 20090709
  Receipt Date: 20090304
  Transmission Date: 20100115
  Serious: Yes (Hospitalization)
  Sender: FDA-Public Use
  Company Number: B0582954A

PATIENT
  Age: 48 Year
  Sex: Male
  Weight: 110 kg

DRUGS (5)
  1. OMACOR [Suspect]
     Dosage: 1000MG PER DAY
     Route: 048
     Dates: start: 20050322
  2. AGGRENOX [Concomitant]
     Route: 048
  3. ASPIRIN [Concomitant]
     Dosage: 100MG PER DAY
  4. PLAVIX [Concomitant]
  5. MARCUMAR [Concomitant]
     Route: 048

REACTIONS (1)
  - NORMOCHROMIC NORMOCYTIC ANAEMIA [None]
